FAERS Safety Report 8340405-X (Version None)
Quarter: 2012Q2

REPORT INFORMATION
  Report Type: 
  Country: None (occurrence: None)
  Receive Date: 20120507
  Receipt Date: 20120507
  Transmission Date: 20120825
  Serious: Yes (Death)
  Sender: FDA-Public Use
  Company Number: None

PATIENT
  Age: 83 Year
  Sex: Male
  Weight: 80 kg

DRUGS (1)
  1. DABIGATRAN [Suspect]
     Indication: ATRIAL FIBRILLATION
     Dosage: |DOSAGETEXT: 150MG||STRENGTH: 150MG||FREQ: BID||ROUTE: ORAL|
     Route: 048

REACTIONS (2)
  - SUBARACHNOID HAEMORRHAGE [None]
  - CARDIAC ARREST [None]
